FAERS Safety Report 4543232-4 (Version None)
Quarter: 2004Q4

REPORT INFORMATION
  Report Type: 
  Country: None (occurrence: None)
  Receive Date: 20041229
  Receipt Date: 20041220
  Transmission Date: 20050328
  Serious: Yes (Hospitalization)
  Sender: FDA-Public Use
  Company Number: 2004GB02737

PATIENT
  Age: 42 Year
  Sex: Male

DRUGS (4)
  1. QUETIAPINE [Suspect]
     Dosage: 350 MG DAILY PO
     Route: 048
  2. CLOZAPINE [Suspect]
     Indication: SCHIZOPHRENIA
  3. ABILIFY [Suspect]
     Indication: SCHIZOPHRENIA
     Dosage: 15-30MG NOCTE
  4. ABILIFY [Suspect]
     Indication: SCHIZOPHRENIA
     Dosage: 30 MG HS PO
     Route: 048

REACTIONS (7)
  - BLOOD CREATINE PHOSPHOKINASE INCREASED [None]
  - CONDITION AGGRAVATED [None]
  - DISTURBANCE IN ATTENTION [None]
  - HALLUCINATION [None]
  - MUSCLE RIGIDITY [None]
  - SOCIAL AVOIDANT BEHAVIOUR [None]
  - TARDIVE DYSKINESIA [None]
